FAERS Safety Report 17841456 (Version 1)
Quarter: 2020Q2

REPORT INFORMATION
  Report Type: Report from Study
  Country: BR (occurrence: BR)
  Receive Date: 20200529
  Receipt Date: 20200529
  Transmission Date: 20200714
  Serious: Yes (Other)
  Sender: FDA-Public Use
  Company Number: NVSC2019BR024093

PATIENT
  Age: 31 Year
  Sex: Female

DRUGS (2)
  1. ILARIS [Suspect]
     Active Substance: CANAKINUMAB
     Indication: FAMILIAL COLD AUTOINFLAMMATORY SYNDROME
     Dosage: UNK
     Route: 065
     Dates: start: 20180228
  2. ILARIS [Suspect]
     Active Substance: CANAKINUMAB
     Dosage: UNK
     Route: 065
     Dates: start: 20200427

REACTIONS (2)
  - Urine analysis abnormal [Unknown]
  - Glycogen storage disease type VIII [Recovered/Resolved]

NARRATIVE: CASE EVENT DATE: 202004
